FAERS Safety Report 8082221-2 (Version None)
Quarter: 2012Q1

REPORT INFORMATION
  Report Type: 
  Country: None (occurrence: None)
  Receive Date: 20120127
  Receipt Date: 20110201
  Transmission Date: 20120608
  Serious: No
  Sender: FDA-Public Use
  Company Number: US-ABBOTT-11P-163-0702022-00

PATIENT
  Sex: Male
  Weight: 59.928 kg

DRUGS (2)
  1. HUMIRA [Suspect]
     Indication: CROHN'S DISEASE
     Route: 058
     Dates: start: 20070401
  2. LOMOTIL [Concomitant]
     Indication: DIARRHOEA
     Dosage: AS NEEDED
     Route: 048

REACTIONS (2)
  - UNEVALUABLE EVENT [None]
  - HYPOPHAGIA [None]
